FAERS Safety Report 26167717 (Version 1)
Quarter: 2025Q4

REPORT INFORMATION
  Report Type: Spontaneous
  Country: US (occurrence: US)
  Receive Date: 20251217
  Receipt Date: 20251217
  Transmission Date: 20260118
  Serious: Yes (Life-Threatening)
  Sender: RECKITT BENCKISER
  Company Number: US-PROD-AS2-212756134-20-25-USA-RB-0027509

PATIENT
  Age: 6 Day
  Sex: Male

DRUGS (2)
  1. DEXTROMETHORPHAN [Suspect]
     Active Substance: DEXTROMETHORPHAN
     Indication: Hyperglycinaemia
     Dosage: UNKNOWN
     Route: 065
  2. SODIUM BENZOATE [Suspect]
     Active Substance: SODIUM BENZOATE
     Indication: Hyperglycinaemia
     Dosage: UNKNOWN
     Route: 065

REACTIONS (3)
  - Bradypnoea [Recovered/Resolved]
  - Dependence on respirator [Recovered/Resolved]
  - Product prescribing issue [Recovered/Resolved]
